FAERS Safety Report 19490851 (Version 1)
Quarter: 2021Q3

REPORT INFORMATION
  Report Type: Spontaneous
  Country: DE (occurrence: DE)
  Receive Date: 20210705
  Receipt Date: 20210705
  Transmission Date: 20211014
  Serious: Yes (Hospitalization, Other)
  Sender: FDA-Public Use
  Company Number: DE-TEVA-2021-DE-1929448

PATIENT
  Age: 83 Year
  Sex: Male

DRUGS (17)
  1. TORASEMID [Suspect]
     Active Substance: TORSEMIDE
     Dosage: 10 MG, 1?1?0?0
     Route: 048
  2. METOPROLOL. [Suspect]
     Active Substance: METOPROLOL
     Dosage: 190 MILLIGRAM DAILY; 1?0?1?0
     Route: 048
  3. CANDESARTAN. [Concomitant]
     Active Substance: CANDESARTAN
     Dosage: 16 MILLIGRAM DAILY;  0?0?1?0
     Route: 048
  4. VIANI [Concomitant]
     Active Substance: FLUTICASONE PROPIONATE\SALMETEROL XINAFOATE
     Dosage: 100 MICROGRAM DAILY; 1?0?1?0, METERED DOSE INHALER
     Route: 055
  5. LIXIANA 30MG [Concomitant]
     Active Substance: EDOXABAN TOSYLATE
     Dosage: 30 MILLIGRAM DAILY; 1?0?0?0
     Route: 048
  6. PANTOPRAZOL [Concomitant]
     Active Substance: PANTOPRAZOLE SODIUM
     Dosage: 20 MILLIGRAM DAILY; 1?0?0?0
     Route: 048
  7. MOLSIDOMIN [Concomitant]
     Active Substance: MOLSIDOMINE
     Dosage: 16 MILLIGRAM DAILY; 1?0?1?0
     Route: 048
  8. AMLODIPIN [Concomitant]
     Active Substance: AMLODIPINE BESYLATE
     Dosage: 10 MILLIGRAM DAILY; 10 MG, 0.5?0?0.5?0
     Route: 048
  9. SIMVASTATIN. [Concomitant]
     Active Substance: SIMVASTATIN
     Dosage: 10 MILLIGRAM DAILY; 0?0?1?0
     Route: 048
  10. CLOPIDOGREL [Concomitant]
     Active Substance: CLOPIDOGREL BISULFATE
     Dosage: 75 MILLIGRAM DAILY; 1?0?0?0
     Route: 048
  11. FENTANYL. [Concomitant]
     Active Substance: FENTANYL
     Dosage: 12 UG, CHANGE EVERY 5 DAYS, 1DF
     Route: 062
  12. MOVICOL BEUTEL [Concomitant]
     Active Substance: POLYETHYLENE GLYCOL 3350\POTASSIUM CHLORIDE\SODIUM BICARBONATE\SODIUM CHLORIDE
     Dosage: 1 DOSAGE FORMS DAILY; 1?0?0?0
     Route: 048
  13. ALLOPURINOL. [Concomitant]
     Active Substance: ALLOPURINOL
     Dosage: 150 MILLIGRAM DAILY; 300 MG, 0.5?0?0?0
     Route: 048
  14. XIPAMID [Suspect]
     Active Substance: XIPAMIDE
     Dosage: 10 MG, 1?0.5?0?0, 15MG
     Route: 048
  15. TAMSULOSIN [Concomitant]
     Active Substance: TAMSULOSIN
     Dosage: .4 MILLIGRAM DAILY; 1?0?0?0
     Route: 048
  16. SPIRIVA [Concomitant]
     Active Substance: TIOTROPIUM BROMIDE MONOHYDRATE
     Dosage: 18 MICROGRAM DAILY; 1?0?0?0, METERED DOSE INHALER
     Route: 055
  17. BIOLECTRA MAGNESIUM 365MG FORTISSIMUM ZITRONE [Concomitant]
     Dosage: 2 DOSAGE FORMS DAILY; 1?0?1?0
     Route: 048

REACTIONS (4)
  - Pleural effusion [Unknown]
  - Cardiac failure [Unknown]
  - Dyspnoea [Unknown]
  - Pulmonary congestion [Unknown]

NARRATIVE: CASE EVENT DATE: 20210415
